FAERS Safety Report 8835652 (Version 1)
Quarter: 2012Q4

REPORT INFORMATION
  Report Type: 
  Country: US (occurrence: US)
  Receive Date: 20121011
  Receipt Date: 20121011
  Transmission Date: 20130627
  Serious: Yes (Other)
  Sender: FDA-Public Use
  Company Number: US-BRISTOL-MYERS SQUIBB COMPANY-17014572

PATIENT
  Sex: Male

DRUGS (1)
  1. BUSPAR [Suspect]
     Dates: start: 20030527

REACTIONS (2)
  - Hepatic pain [Unknown]
  - Emotional distress [Unknown]
